FAERS Safety Report 5843368-1 (Version None)
Quarter: 2008Q3

REPORT INFORMATION
  Report Type: 
  Country: None (occurrence: None)
  Receive Date: 20080812
  Receipt Date: 20080812
  Transmission Date: 20090109
  Serious: Yes (Death)
  Sender: FDA-Public Use
  Company Number: None

PATIENT
  Age: 75 Year
  Sex: Male
  Weight: 72.5755 kg

DRUGS (4)
  1. COUMADIN [Suspect]
     Indication: ATRIAL FIBRILLATION
     Dosage: 5 MG DAILY PO, CHRONIC
     Route: 048
  2. LANOXIN [Concomitant]
  3. TOPROL-XL [Concomitant]
  4. LASIX [Concomitant]

REACTIONS (6)
  - BRAIN DEATH [None]
  - BRAIN HERNIATION [None]
  - CORNEAL REFLEX DECREASED [None]
  - HEAD INJURY [None]
  - PUPIL FIXED [None]
  - SUBDURAL HAEMATOMA [None]
